FAERS Safety Report 10169145 (Version 1)
Quarter: 2014Q2

REPORT INFORMATION
  Report Type: Spontaneous
  Country: US (occurrence: None)
  Receive Date: 20140512
  Receipt Date: 20140512
  Transmission Date: 20141212
  Serious: No
  Sender: FDA-Public Use
  Company Number: None

PATIENT
  Age: 83 Year
  Sex: Male

DRUGS (1)
  1. XTANDI 40 MG [Suspect]
     Indication: PROSTATE CANCER
     Route: 048
     Dates: start: 20131122, end: 20140501

REACTIONS (8)
  - Prostatic specific antigen increased [None]
  - Fatigue [None]
  - Asthenia [None]
  - Myalgia [None]
  - Arthralgia [None]
  - Pollakiuria [None]
  - Hallucination [None]
  - Memory impairment [None]
